FAERS Safety Report 24148673 (Version 1)
Quarter: 2024Q3

REPORT INFORMATION
  Report Type: Spontaneous
  Country: NL (occurrence: NL)
  Receive Date: 20240729
  Receipt Date: 20240729
  Transmission Date: 20241017
  Serious: Yes (Hospitalization)
  Sender: MYLAN
  Company Number: None

PATIENT
  Age: 85 Year
  Sex: Female

DRUGS (12)
  1. PREGABALIN [Suspect]
     Active Substance: PREGABALIN
     Indication: Intervertebral disc protrusion
     Dosage: 75 MILLIGRAM, BID (1 PIECE TWICE A DAY)
     Route: 065
     Dates: start: 20240415, end: 20240419
  2. METFORMIN HYDROCHLORIDE [Concomitant]
     Active Substance: METFORMIN HYDROCHLORIDE
     Dosage: 500 MILLIGRAM (REGULATED-RELEASE TABLET, 500 MG (MILLIGRAMS))
     Route: 065
  3. BUMETANIDE [Concomitant]
     Active Substance: BUMETANIDE
     Dosage: 1 MILLIGRAM (TABLET, 1 MG (MILLIGRAM))
     Route: 065
  4. INSULIN ASPART [Concomitant]
     Active Substance: INSULIN ASPART
     Dosage: UNK (INJECTION SOLUTION, 100 UNITS/ML (UNITS PER MILLILITRE) )
     Route: 065
  5. ACETAMINOPHEN [Concomitant]
     Active Substance: ACETAMINOPHEN
     Dosage: 500 MILLIGRAM (TABLET, 500 MG (MILLIGRAM))
     Route: 065
  6. FENTANYL [Concomitant]
     Active Substance: FENTANYL\FENTANYL CITRATE
     Dosage: UNK (PLASTER)
     Route: 065
  7. METOPROLOL [Concomitant]
     Active Substance: METOPROLOL
     Dosage: 50 MILLIGRAM (REGULATED-RELEASE TABLET, 50 MG (MILLIGRAMS))
     Route: 065
  8. GLICLAZIDE [Concomitant]
     Active Substance: GLICLAZIDE
     Dosage: 30 MILLIGRAM (REGULATED-RELEASE TABLET, 30 MG (MILLIGRAMS))
     Route: 065
  9. CALCIUM CARBONATE\CHOLECALCIFEROL [Concomitant]
     Active Substance: CALCIUM CARBONATE\CHOLECALCIFEROL
     Dosage: UNK (CHEWABLE TABLET, 1.25 G (GRAMS)/1000 UNITS)
     Route: 065
  10. PANTOPRAZOLE SODIUM [Concomitant]
     Active Substance: PANTOPRAZOLE SODIUM
     Dosage: 40 MILLIGRAM (GASTRO-RESISTANT TABLET, 40 MG (MILLIGRAMS))
     Route: 065
  11. INSULIN GLARGINE [Concomitant]
     Active Substance: INSULIN GLARGINE
     Dosage: UNK (INJECTION SOLUTION, 100 UNITS/ML (UNITS PER MILLILITRE))
     Route: 065
  12. ASPIRIN [Concomitant]
     Active Substance: ASPIRIN
     Dosage: 80 MILLIGRAM (TABLET, 80 MG (MILLIGRAM))
     Route: 065

REACTIONS (1)
  - Epilepsy [Recovered/Resolved]
